FAERS Safety Report 23951541 (Version 1)
Quarter: 2024Q2

REPORT INFORMATION
  Report Type: Spontaneous
  Country: US (occurrence: None)
  Receive Date: 20240607
  Receipt Date: 20240607
  Transmission Date: 20240716
  Serious: Yes (Other)
  Sender: FDA-Public Use
  Company Number: None

PATIENT
  Age: 53 Year
  Sex: Female
  Weight: 86.4 kg

DRUGS (13)
  1. STELARA [Suspect]
     Active Substance: USTEKINUMAB
     Indication: Psoriasis
     Dates: start: 20240419
  2. STELARA [Suspect]
     Active Substance: USTEKINUMAB
     Indication: Psoriatic arthropathy
  3. AMLODIPINE BESYLATE [Suspect]
     Active Substance: AMLODIPINE BESYLATE
  4. MELOXICAM [Concomitant]
  5. CALCIPOTRIENE [Concomitant]
  6. STELARA [Concomitant]
     Active Substance: USTEKINUMAB
  7. ZANTAC [Concomitant]
  8. VITAMIN D3 [Concomitant]
     Active Substance: CHOLECALCIFEROL
  9. LACTOBACILLUS ACIDOPHILUS [Concomitant]
     Active Substance: LACTOBACILLUS ACIDOPHILUS
  10. Nexium [Concomitant]
  11. Smarty Pants Women 50+multi-vitamin [Concomitant]
  12. Vitafusion Fiber Well Fit fiber supplement [Concomitant]
  13. Scalpicin Max Strenght Scalp Itch Treatment [Concomitant]

REACTIONS (5)
  - Blood pressure increased [None]
  - Nausea [None]
  - Headache [None]
  - Dizziness [None]
  - Visual impairment [None]

NARRATIVE: CASE EVENT DATE: 20240517
